FAERS Safety Report 21930105 (Version 2)
Quarter: 2023Q1

REPORT INFORMATION
  Report Type: Report from Study
  Country: GT (occurrence: GT)
  Receive Date: 20230131
  Receipt Date: 20230203
  Transmission Date: 20230417
  Serious: Yes (Life-Threatening, Hospitalization)
  Sender: FDA-Public Use
  Company Number: GT-002147023-NVSC2023GT020457

PATIENT
  Sex: Male
  Weight: 74.8 kg

DRUGS (1)
  1. EXFORGE [Suspect]
     Active Substance: AMLODIPINE BESYLATE\VALSARTAN
     Indication: Hypertension
     Dosage: 1 DOSAGE FORM, QD
     Route: 048
     Dates: start: 2021

REACTIONS (2)
  - Hypertensive crisis [Recovering/Resolving]
  - Eye disorder [Not Recovered/Not Resolved]
